FAERS Safety Report 10334643 (Version 1)
Quarter: 2014Q3

REPORT INFORMATION
  Report Type: Spontaneous
  Country: US (occurrence: US)
  Receive Date: 20140723
  Receipt Date: 20140723
  Transmission Date: 20150326
  Serious: No
  Sender: FDA-Public Use
  Company Number: US-TEVA-493961USA

PATIENT
  Age: 75 Year
  Sex: Male
  Weight: 99.88 kg

DRUGS (5)
  1. CARBIDOPA W/LEVODOPA [Concomitant]
     Active Substance: CARBIDOPA\LEVODOPA
     Dosage: 25/100; 50/200
  2. AZILECT [Suspect]
     Active Substance: RASAGILINE MESYLATE
     Indication: PARKINSON^S DISEASE
     Dosage: 1 OR 2 DOSES
     Dates: start: 201205
  3. CELEBREX [Concomitant]
     Active Substance: CELECOXIB
  4. COQ10 [Concomitant]
     Active Substance: UBIDECARENONE
  5. AMANTADINE [Concomitant]
     Active Substance: AMANTADINE

REACTIONS (3)
  - Drug interaction [Unknown]
  - Post procedural infection [Unknown]
  - Adverse reaction [Unknown]

NARRATIVE: CASE EVENT DATE: 201306
